FAERS Safety Report 24410932 (Version 1)
Quarter: 2024Q4

REPORT INFORMATION
  Report Type: Spontaneous
  Country: LB (occurrence: LB)
  Receive Date: 20241008
  Receipt Date: 20241008
  Transmission Date: 20250114
  Serious: Yes (Other)
  Sender: ROCHE
  Company Number: LB-ROCHE-10000098751

PATIENT
  Sex: Male

DRUGS (12)
  1. GAZYVA [Suspect]
     Active Substance: OBINUTUZUMAB
     Indication: Follicular lymphoma
     Dosage: 1ST LINE SYSTEMIC TREATMENT
     Route: 065
     Dates: start: 20220426, end: 20220525
  2. RITUXIMAB [Suspect]
     Active Substance: RITUXIMAB
     Indication: Follicular lymphoma
     Dosage: 2ND LINE SYSTEMIC TREATMENT (R-CHOP)
     Route: 065
     Dates: start: 20220626, end: 20221011
  3. RITUXIMAB [Suspect]
     Active Substance: RITUXIMAB
     Dosage: 3RD LINE SYSTEMIC TREATMENT (RDHAOX)
     Route: 065
     Dates: start: 20230718, end: 20230923
  4. DEXAMETHASONE [Suspect]
     Active Substance: DEXAMETHASONE
     Indication: Follicular lymphoma
     Dosage: 3RD LINE SYSTEMIC TREATMENT (RDHAOX)
     Route: 065
     Dates: start: 20230718, end: 20230923
  5. CYTARABINE [Suspect]
     Active Substance: CYTARABINE
     Indication: Follicular lymphoma
     Dosage: 3RD LINE SYSTEMIC TREATMENT (RDHAOX)
     Route: 065
     Dates: start: 20230718, end: 20230923
  6. OXALIPLATIN [Suspect]
     Active Substance: OXALIPLATIN
     Indication: Follicular lymphoma
     Dosage: 3RD LINE SYSTEMIC TREATMENT (RDHAOX)
     Route: 065
     Dates: start: 20230718, end: 20230923
  7. BENDAMUSTINE [Suspect]
     Active Substance: BENDAMUSTINE
     Indication: Follicular lymphoma
     Dosage: 1ST LINE SYSTEMIC TREATMENT
     Route: 065
     Dates: start: 20220426, end: 20220525
  8. CYCLOPHOSPHAMIDE [Suspect]
     Active Substance: CYCLOPHOSPHAMIDE
     Indication: Follicular lymphoma
     Dosage: 2ND LINE SYSTEMIC TREATMENT (R-CHOP)
     Route: 065
     Dates: start: 20220626, end: 20221011
  9. PREDNISONE [Suspect]
     Active Substance: PREDNISONE
     Indication: Follicular lymphoma
     Dosage: 2ND LINE SYSTEMIC TREATMENT (R-CHOP)
     Route: 065
     Dates: start: 20220626, end: 20221011
  10. EPIRUBICIN [Suspect]
     Active Substance: EPIRUBICIN
     Indication: Follicular lymphoma
     Dosage: 2ND LINE SYSTEMIC TREATMENT (R-CHOP)
     Route: 065
     Dates: start: 20220626, end: 20221011
  11. VINCRISTINE SULFATE [Suspect]
     Active Substance: VINCRISTINE SULFATE
     Indication: Follicular lymphoma
     Dosage: 2ND LINE SYSTEMIC TREATMENT (R-CHOP)
     Route: 065
     Dates: start: 20220626, end: 20221011
  12. CISPLATIN [Suspect]
     Active Substance: CISPLATIN
     Indication: Follicular lymphoma
     Dosage: 3RD SYSTEMIC TREATMENT RDHAOX
     Route: 065
     Dates: start: 20230718, end: 20230923

REACTIONS (1)
  - Disease progression [Unknown]
